FAERS Safety Report 9768055 (Version 1)
Quarter: 2013Q4

REPORT INFORMATION
  Report Type: Spontaneous
  Country: US (occurrence: US)
  Receive Date: 20131217
  Receipt Date: 20131217
  Transmission Date: 20140711
  Serious: Yes (Other)
  Sender: FDA-Public Use
  Company Number: US-PFIZER INC-2013358069

PATIENT
  Age: 67 Year
  Sex: Female
  Weight: 58.05 kg

DRUGS (3)
  1. PREMARIN [Suspect]
     Indication: MENOPAUSAL SYMPTOMS
     Dosage: UNK
  2. VITAMIN E [Concomitant]
     Dosage: UNK
  3. CALCIUM [Concomitant]
     Dosage: UNK

REACTIONS (4)
  - Gastric ulcer haemorrhage [Unknown]
  - Bone pain [Unknown]
  - Alopecia [Unknown]
  - Dry skin [Unknown]
